FAERS Safety Report 14204780 (Version 1)
Quarter: 2017Q4

REPORT INFORMATION
  Report Type: Spontaneous
  Country: US (occurrence: US)
  Receive Date: 20171118
  Receipt Date: 20171118
  Transmission Date: 20180321
  Serious: Yes (Disabling)
  Sender: FDA-Public Use
  Company Number: None

PATIENT
  Age: 65 Year
  Sex: Female
  Weight: 99 kg

DRUGS (5)
  1. CLINDAMYCIN 150 MG [Suspect]
     Active Substance: CLINDAMYCIN
     Indication: WISDOM TEETH REMOVAL
     Dosage: ?          QUANTITY:28 TABLET(S);?EVERY 6 HOURS ORAL
     Route: 048
     Dates: start: 20171019, end: 20171027
  2. VITAMIN D [Concomitant]
     Active Substance: CHOLECALCIFEROL
  3. BENADRYL [Concomitant]
     Active Substance: DIPHENHYDRAMINE HYDROCHLORIDE
  4. AMBIEN [Concomitant]
     Active Substance: ZOLPIDEM TARTRATE
  5. CLINDAMYCIN 150 MG [Suspect]
     Active Substance: CLINDAMYCIN
     Indication: INFECTION
     Dosage: ?          QUANTITY:28 TABLET(S);?EVERY 6 HOURS ORAL
     Route: 048
     Dates: start: 20171019, end: 20171027

REACTIONS (2)
  - Clostridium difficile infection [None]
  - Diarrhoea [None]

NARRATIVE: CASE EVENT DATE: 20171108
